FAERS Safety Report 17414096 (Version 4)
Quarter: 2022Q1

REPORT INFORMATION
  Report Type: Spontaneous
  Country: PR (occurrence: PR)
  Receive Date: 20200213
  Receipt Date: 20220314
  Transmission Date: 20220423
  Serious: No
  Sender: FDA-Public Use
  Company Number: PR-PFIZER INC-2020059422

PATIENT
  Age: 13 Year
  Sex: Male
  Weight: 34.47 kg

DRUGS (2)
  1. GENOTROPIN [Suspect]
     Active Substance: SOMATROPIN
     Indication: Blood growth hormone
     Dosage: 2.4 MG, 1X/DAY (SUNDAY- FRIDAY, OFF ON SATURDAY)
     Dates: start: 201908
  2. GENOTROPIN [Suspect]
     Active Substance: SOMATROPIN
     Dosage: 3 ML, 1X/DAY (12MG-DOSE 3ML X 7 DAYS A WEEK)
     Dates: start: 20190804

REACTIONS (5)
  - Device issue [Unknown]
  - Drug dose omission by device [Unknown]
  - Poor quality device used [Unknown]
  - Product storage error [Unknown]
  - Weight decreased [Unknown]
